FAERS Safety Report 21840608 (Version 1)
Quarter: 2023Q1

REPORT INFORMATION
  Report Type: Spontaneous
  Country: GB (occurrence: GB)
  Receive Date: 20230110
  Receipt Date: 20230110
  Transmission Date: 20230418
  Serious: Yes (Other)
  Sender: FDA-Public Use
  Company Number: None

PATIENT
  Age: 54 Year
  Sex: Male
  Weight: 85.27 kg

DRUGS (2)
  1. RIVAROXABAN [Suspect]
     Active Substance: RIVAROXABAN
     Indication: Ill-defined disorder
     Dosage: 20 MG, QD
     Route: 048
     Dates: start: 20210828
  2. RIVAROXABAN [Suspect]
     Active Substance: RIVAROXABAN
     Indication: Thrombosis
     Route: 048

REACTIONS (3)
  - Tinnitus [Not Recovered/Not Resolved]
  - Taste disorder [Unknown]
  - Parosmia [Unknown]

NARRATIVE: CASE EVENT DATE: 20210910
